FAERS Safety Report 19166468 (Version 1)
Quarter: 2021Q2

REPORT INFORMATION
  Report Type: Spontaneous
  Country: US (occurrence: US)
  Receive Date: 20210421
  Receipt Date: 20210421
  Transmission Date: 20210717
  Serious: Yes (Other)
  Sender: FDA-Public Use
  Company Number: None

PATIENT
  Age: 40 Year
  Sex: Female
  Weight: 82.8 kg

DRUGS (9)
  1. DYMISTA [Concomitant]
     Active Substance: AZELASTINE HYDROCHLORIDE\FLUTICASONE PROPIONATE
  2. HYDROXYCHLORTHIAZIDE (WATER PILL) [Concomitant]
  3. PLAQUENIL [Concomitant]
     Active Substance: HYDROXYCHLOROQUINE SULFATE
  4. MONTELUKAST [Suspect]
     Active Substance: MONTELUKAST SODIUM
     Indication: MULTIPLE ALLERGIES
     Dosage: ?          QUANTITY:1 TABLET(S);?
     Route: 048
     Dates: start: 20210208, end: 20210420
  5. ZYRTEC [Concomitant]
     Active Substance: CETIRIZINE HYDROCHLORIDE
  6. ALBURTEROL [Concomitant]
  7. MONTELUKAST [Suspect]
     Active Substance: MONTELUKAST SODIUM
     Indication: ASTHMA
     Dosage: ?          QUANTITY:1 TABLET(S);?
     Route: 048
     Dates: start: 20210208, end: 20210420
  8. AUGMENTIN (ON LAST DOSE TODAY) [Concomitant]
  9. MELOXICAM. [Concomitant]
     Active Substance: MELOXICAM

REACTIONS (14)
  - Palpitations [None]
  - Obsessive-compulsive disorder [None]
  - Restlessness [None]
  - Headache [None]
  - Irritability [None]
  - Impatience [None]
  - Tearfulness [None]
  - Delusional perception [None]
  - Energy increased [None]
  - Sleep disorder [None]
  - Disturbance in attention [None]
  - Depressed mood [None]
  - Affective disorder [None]
  - Decreased appetite [None]

NARRATIVE: CASE EVENT DATE: 20210401
